FAERS Safety Report 4926217-5 (Version None)
Quarter: 2006Q1

REPORT INFORMATION
  Report Type: 
  Country: None (occurrence: None)
  Receive Date: 20060228
  Receipt Date: 20051130
  Transmission Date: 20060701
  Serious: No
  Sender: FDA-Public Use
  Company Number: US-GLAXOSMITHKLINE-A0585278A

PATIENT
  Age: 45 Year
  Sex: Male

DRUGS (6)
  1. LAMICTAL [Suspect]
     Indication: BIPOLAR DISORDER
     Dosage: 150MG PER DAY
     Route: 048
     Dates: start: 20050630, end: 20051128
  2. XANAX [Concomitant]
  3. DOXEPIN [Concomitant]
  4. VIAGRA [Concomitant]
  5. PROPRANOLOL [Concomitant]
  6. PROZAC [Concomitant]

REACTIONS (4)
  - MUCOSAL INFLAMMATION [None]
  - SWOLLEN TONGUE [None]
  - TENDERNESS [None]
  - TONGUE BLISTERING [None]
